FAERS Safety Report 5778108-8 (Version None)
Quarter: 2008Q2

REPORT INFORMATION
  Report Type: 
  Country: None (occurrence: None)
  Receive Date: 20080617
  Receipt Date: 20080617
  Transmission Date: 20081010
  Serious: Yes (Hospitalization)
  Sender: FDA-Public Use
  Company Number: None

PATIENT
  Age: 95 Year
  Sex: Female

DRUGS (3)
  1. RYTHMOL [Suspect]
     Indication: ATRIAL FIBRILLATION
     Dosage: 150MG TID PO
     Route: 048
  2. DIGOXIN [Concomitant]
  3. RYTHMOL [Concomitant]

REACTIONS (1)
  - BRADYCARDIA [None]
